FAERS Safety Report 4839564-2 (Version None)
Quarter: 2005Q4

REPORT INFORMATION
  Report Type: 
  Country: None (occurrence: None)
  Receive Date: 20051128
  Receipt Date: 20051128
  Transmission Date: 20060501
  Serious: Yes (Hospitalization)
  Sender: FDA-Public Use
  Company Number: None

PATIENT
  Sex: Female
  Weight: 57.6068 kg

DRUGS (18)
  1. RITUXIMAB [Suspect]
     Indication: NON-HODGKIN'S LYMPHOMA
     Dosage: 590MG   X1 DOSE   IV DRIP
     Route: 041
     Dates: start: 20051109, end: 20051109
  2. CYCLOPHOSPHAMIDE [Concomitant]
  3. DOXORUBICIN HCL [Concomitant]
  4. VINCRISTINE [Concomitant]
  5. PREDNISONE [Concomitant]
  6. -CHOP- [Concomitant]
  7. ALLOPURINOL [Concomitant]
  8. PEGFILGRASTIM [Concomitant]
  9. LOPRESSOR [Concomitant]
  10. HYDRALAZINE [Concomitant]
  11. HYDROCHLORATHIAZIDE [Concomitant]
  12. ATIVAN [Concomitant]
  13. TYLENOL [Concomitant]
  14. COMPAZINE [Concomitant]
  15. DECADRON [Concomitant]
  16. DIPHENHYDRAMINE HCL [Concomitant]
  17. ACETAMINOPHEN [Concomitant]
  18. ANZAMET [Concomitant]

REACTIONS (5)
  - ANXIETY [None]
  - BLOOD PRESSURE INCREASED [None]
  - BUNDLE BRANCH BLOCK LEFT [None]
  - HEADACHE [None]
  - INFUSION RELATED REACTION [None]
